FAERS Safety Report 4734066-6 (Version None)
Quarter: 2005Q3

REPORT INFORMATION
  Report Type: 
  Country: None (occurrence: None)
  Receive Date: 20050803
  Receipt Date: 20050803
  Transmission Date: 20060218
  Serious: Yes (Death)
  Sender: FDA-Public Use
  Company Number: None

PATIENT
  Age: 74 Year
  Sex: Male

DRUGS (7)
  1. OXALIPLATIN [Suspect]
     Indication: LUNG NEOPLASM MALIGNANT
     Dosage: 85MG/M2 DAY 1 + 15
     Dates: start: 20050510, end: 20050524
  2. DOCETAXEL [Suspect]
     Indication: LUNG NEOPLASM MALIGNANT
     Dosage: 30MG/M2 DAY 1 + 8
     Dates: start: 20050510, end: 20050517
  3. PREVACID [Concomitant]
  4. HYDROCHLOROTHIAZIDE [Concomitant]
  5. LISINOPRIL [Concomitant]
  6. NORCO [Concomitant]
  7. COMBIVENT [Concomitant]

REACTIONS (5)
  - ANAEMIA [None]
  - ATELECTASIS [None]
  - HYPERTENSION [None]
  - PLEURAL EFFUSION [None]
  - RESPIRATORY DISTRESS [None]
